FAERS Safety Report 9308001 (Version 2)
Quarter: 2013Q2

REPORT INFORMATION
  Report Type: Spontaneous
  Country: US (occurrence: US)
  Receive Date: 20130524
  Receipt Date: 20130605
  Transmission Date: 20140414
  Serious: No
  Sender: FDA-Public Use
  Company Number: US-PFIZER INC-2013116332

PATIENT
  Age: 63 Year
  Sex: Female
  Weight: 68.04 kg

DRUGS (4)
  1. MOTRIN IB [Suspect]
     Indication: PAIN
     Dosage: 1 OR 2 TABLET (200 OR 400 MG ) AT NIGHT WHEN IN PAIN
     Route: 048
  2. CALTRATE [Concomitant]
     Indication: BONE DISORDER
     Dosage: 600 MG, 2X/DAY
     Dates: start: 2000
  3. CENTRUM SILVER MULTIVITAMINS [Concomitant]
     Indication: ROUTINE HEALTH MAINTENANCE
     Dosage: UNK
     Dates: start: 2008
  4. PROBIOTIC [Concomitant]
     Indication: CONSTIPATION
     Dosage: UNK
     Dates: start: 2008

REACTIONS (2)
  - Abdominal discomfort [Recovered/Resolved]
  - Constipation [Recovered/Resolved]
